FAERS Safety Report 7820785-1 (Version None)
Quarter: 2011Q4

REPORT INFORMATION
  Report Type: 
  Country: None (occurrence: None)
  Receive Date: 20111018
  Receipt Date: 20111010
  Transmission Date: 20120403
  Serious: Yes (Hospitalization, Other)
  Sender: FDA-Public Use
  Company Number: US-MERCK-1108USA00318

PATIENT
  Age: 64 Year
  Sex: Female
  Weight: 92 kg

DRUGS (2)
  1. FOSAMAX [Suspect]
     Indication: OSTEOPOROSIS
     Route: 048
     Dates: start: 20020401, end: 20080801
  2. SYNTHROID [Concomitant]
     Indication: HYPOTHYROIDISM
     Route: 065
     Dates: start: 19980101

REACTIONS (13)
  - LEFT VENTRICULAR HYPERTROPHY [None]
  - PULMONARY VALVE INCOMPETENCE [None]
  - CHEST PAIN [None]
  - HIATUS HERNIA [None]
  - OSTEOPENIA [None]
  - HYPERTENSION [None]
  - FEMUR FRACTURE [None]
  - BRONCHITIS [None]
  - MITRAL VALVE INCOMPETENCE [None]
  - DYSPEPSIA [None]
  - TRICUSPID VALVE INCOMPETENCE [None]
  - VIRAL INFECTION [None]
  - LIBIDO DECREASED [None]
